FAERS Safety Report 24289207 (Version 2)
Quarter: 2024Q3

REPORT INFORMATION
  Report Type: Report from Study
  Country: US (occurrence: US)
  Receive Date: 20240906
  Receipt Date: 20240918
  Transmission Date: 20241016
  Serious: Yes (Hospitalization)
  Sender: ABBVIE
  Company Number: US-ABBVIE-5907137

PATIENT
  Sex: Female

DRUGS (3)
  1. SKYRIZI [Suspect]
     Active Substance: RISANKIZUMAB-RZAA
     Indication: Crohn^s disease
     Dosage: GASTRO OBI
     Route: 058
     Dates: start: 2023, end: 2024
  2. SKYRIZI [Suspect]
     Active Substance: RISANKIZUMAB-RZAA
     Dosage: GASTRO OBI
     Route: 058
     Dates: start: 2024
  3. SKYRIZI [Suspect]
     Active Substance: RISANKIZUMAB-RZAA
     Dosage: TIME INTERVAL: TOTAL: GASTRO OBI
     Route: 058
     Dates: start: 20221031

REACTIONS (4)
  - Kidney infection [Recovered/Resolved]
  - Nephrolithiasis [Unknown]
  - Illness [Unknown]
  - Ulcer [Unknown]

NARRATIVE: CASE EVENT DATE: 20230101
